FAERS Safety Report 9811282 (Version 2)
Quarter: 2015Q1

REPORT INFORMATION
  Report Type: Spontaneous
  Country: US (occurrence: US)
  Receive Date: 20140110
  Receipt Date: 20150217
  Transmission Date: 20150721
  Serious: Yes (Hospitalization, Other)
  Sender: FDA-Public Use
  Company Number: US-SANOFI-AVENTIS-2013SA036379

PATIENT
  Age: 74 Year
  Sex: Female
  Weight: 64 kg

DRUGS (6)
  1. ASPIRIN. [Concomitant]
     Active Substance: ASPIRIN
     Dates: start: 20030127, end: 20111115
  2. PLAVIX [Suspect]
     Active Substance: CLOPIDOGREL BISULFATE
     Indication: STENT PLACEMENT
     Dosage: START DATE: AROUND FEBRUARY 2003
     Route: 048
     Dates: start: 20030127, end: 20111115
  3. WARFARIN [Concomitant]
     Active Substance: WARFARIN
     Dates: start: 20110505, end: 20110605
  4. WARFARIN [Concomitant]
     Active Substance: WARFARIN
     Dates: start: 20100701, end: 20100720
  5. WARFARIN [Concomitant]
     Active Substance: WARFARIN
     Dates: start: 20110102, end: 20110202
  6. PLAVIX [Suspect]
     Active Substance: CLOPIDOGREL BISULFATE
     Indication: ACUTE CORONARY SYNDROME
     Dosage: START DATE: AROUND FEBRUARY 2003
     Route: 048
     Dates: start: 20030127, end: 20111115

REACTIONS (6)
  - Gastrointestinal haemorrhage [Unknown]
  - Colectomy [Unknown]
  - Intra-abdominal haemorrhage [Unknown]
  - Blood urine present [Unknown]
  - Pleural effusion [Unknown]
  - Epistaxis [Unknown]

NARRATIVE: CASE EVENT DATE: 2011
